FAERS Safety Report 8732826 (Version 2)
Quarter: 2012Q4

REPORT INFORMATION
  Report Type: 
  Country: CA (occurrence: CA)
  Receive Date: 20120820
  Receipt Date: 20121008
  Transmission Date: 20130627
  Serious: Yes (Death, Hospitalization)
  Sender: FDA-Public Use
  Company Number: PHHY2012CA071570

PATIENT
  Age: 62 Year
  Sex: Female

DRUGS (1)
  1. ZOMETA [Suspect]
     Indication: BREAST CANCER
     Dosage: 4 mg every 4 weeks
     Route: 042
     Dates: start: 20120810

REACTIONS (4)
  - Neoplasm progression [Fatal]
  - Malignant neoplasm progression [Fatal]
  - Disorientation [Unknown]
  - Gait disturbance [Unknown]
